FAERS Safety Report 7031174-4 (Version None)
Quarter: 2010Q4

REPORT INFORMATION
  Report Type: 
  Country: None (occurrence: None)
  Receive Date: 20101006
  Receipt Date: 20100922
  Transmission Date: 20110411
  Serious: Yes (Hospitalization)
  Sender: FDA-Public Use
  Company Number: CA-MYLANLABS-2010S1017496

PATIENT
  Age: 35 Year
  Sex: Male

DRUGS (1)
  1. MYLAN-VERAPAMIL SR [Suspect]

REACTIONS (1)
  - MIGRAINE [None]
